FAERS Safety Report 4665163-1 (Version None)
Quarter: 2005Q2

REPORT INFORMATION
  Report Type: 
  Country: None (occurrence: None)
  Receive Date: 20050517
  Receipt Date: 20050506
  Transmission Date: 20051028
  Serious: Yes (Hospitalization)
  Sender: FDA-Public Use
  Company Number: 2005058587

PATIENT
  Age: 45 Year
  Sex: Male
  Weight: 69 kg

DRUGS (12)
  1. IRINOTECAN HCL [Suspect]
     Indication: RECTAL CANCER
     Dosage: 80 MG (80 MG, INTERMITTENT), INTRAVENOUS
     Route: 042
     Dates: start: 20041122
  2. IRINOTECAN HCL [Suspect]
     Indication: COLORECTAL CANCER
     Dosage: 100 MG (100 MG), INTRAVENOUS
     Route: 042
  3. IRINOTECAN HCL [Suspect]
     Indication: METASTASES TO LIVER
     Dosage: 120 MG (120 MG), INTRAVENOUS
     Route: 042
  4. IRINOTECAN HCL [Suspect]
     Indication: METASTASES TO LUNG
     Dosage: 140 MG (140 MG, INTERMITTENT), INTRAVENOUS
     Route: 042
     Dates: end: 20050201
  5. FLUOROURACIL [Suspect]
     Indication: COLORECTAL CANCER
     Dosage: 900 MG (900 MG, INTERMITTENT), INTRAVENOUS
     Route: 042
     Dates: start: 20041122, end: 20050201
  6. FLUOROURACIL [Suspect]
     Indication: METASTASES TO LIVER
     Dosage: 900 MG (900 MG, INTERMITTENT), INTRAVENOUS
     Route: 042
     Dates: start: 20041122, end: 20050201
  7. FLUOROURACIL [Suspect]
     Indication: METASTASES TO LUNG
     Dosage: 900 MG (900 MG, INTERMITTENT), INTRAVENOUS
     Route: 042
     Dates: start: 20041122, end: 20050201
  8. FLUOROURACIL [Suspect]
     Indication: RECTAL CANCER
     Dosage: 900 MG (900 MG, INTERMITTENT), INTRAVENOUS
     Route: 042
     Dates: start: 20041122, end: 20050201
  9. CALCIUM LEVOFOLINATE (CALCIUM LEVOFOLINATE) [Suspect]
     Indication: COLORECTAL CANCER
     Dosage: 450 MG (450 MG, INTERMITTENT), INTRAVENOUS
     Route: 042
     Dates: start: 20041122, end: 20050201
  10. CALCIUM LEVOFOLINATE (CALCIUM LEVOFOLINATE) [Suspect]
     Indication: METASTASES TO LIVER
     Dosage: 450 MG (450 MG, INTERMITTENT), INTRAVENOUS
     Route: 042
     Dates: start: 20041122, end: 20050201
  11. CALCIUM LEVOFOLINATE (CALCIUM LEVOFOLINATE) [Suspect]
     Indication: METASTASES TO LUNG
     Dosage: 450 MG (450 MG, INTERMITTENT), INTRAVENOUS
     Route: 042
     Dates: start: 20041122, end: 20050201
  12. CALCIUM LEVOFOLINATE (CALCIUM LEVOFOLINATE) [Suspect]
     Indication: RECTAL CANCER
     Dosage: 450 MG (450 MG, INTERMITTENT), INTRAVENOUS
     Route: 042
     Dates: start: 20041122, end: 20050201

REACTIONS (8)
  - ABDOMINAL PAIN [None]
  - CHILLS [None]
  - COLONIC STENOSIS [None]
  - GASTROINTESTINAL PERFORATION [None]
  - ILEUS [None]
  - POST PROCEDURAL COMPLICATION [None]
  - PROCEDURAL COMPLICATION [None]
  - SMALL INTESTINAL PERFORATION [None]
